FAERS Safety Report 13286764 (Version 1)
Quarter: 2017Q1

REPORT INFORMATION
  Report Type: Spontaneous
  Country: US (occurrence: US)
  Receive Date: 20170301
  Receipt Date: 20170301
  Transmission Date: 20170428
  Serious: No
  Sender: FDA-Public Use
  Company Number: US-TEVA-743614ACC

PATIENT
  Age: 55 Year
  Sex: Female

DRUGS (13)
  1. HYDROCODONE CRY BITARTRATE [Concomitant]
  2. BUTAL/APAP [Concomitant]
     Dosage: FORM STRENGTH: 60/325MG
  3. CELECOXIB. [Concomitant]
     Active Substance: CELECOXIB
  4. MAGNESIUM [Concomitant]
     Active Substance: MAGNESIUM
  5. BUTALBITAL [Concomitant]
     Active Substance: BUTALBITAL
  6. LYRICA [Concomitant]
     Active Substance: PREGABALIN
  7. NEXIUM [Concomitant]
     Active Substance: ESOMEPRAZOLE MAGNESIUM
  8. OXCARBAZEPINE. [Concomitant]
     Active Substance: OXCARBAZEPINE
  9. CITALOPRAM [Concomitant]
     Active Substance: CITALOPRAM HYDROBROMIDE
  10. OXYBUTYNIN [Concomitant]
     Active Substance: OXYBUTYNIN
  11. TIZANIDINE. [Concomitant]
     Active Substance: TIZANIDINE
  12. COPAXONE [Suspect]
     Active Substance: GLATIRAMER ACETATE
     Indication: MULTIPLE SCLEROSIS
     Route: 058
     Dates: start: 20161028
  13. FIORICET [Concomitant]
     Active Substance: ACETAMINOPHEN\BUTALBITAL\CAFFEINE

REACTIONS (2)
  - Contusion [Unknown]
  - Fall [Unknown]

NARRATIVE: CASE EVENT DATE: 201701
